FAERS Safety Report 7269496-4 (Version None)
Quarter: 2011Q1

REPORT INFORMATION
  Report Type: 
  Country: None (occurrence: None)
  Receive Date: 20110202
  Receipt Date: 20110125
  Transmission Date: 20110831
  Serious: Yes (Hospitalization, Other)
  Sender: FDA-Public Use
  Company Number: US-BAYER-200810735NA

PATIENT
  Sex: Female

DRUGS (13)
  1. INTERFERON BETA-1B [Suspect]
     Dosage: UNK
     Dates: start: 20060613, end: 20060920
  2. ACTHAR [Suspect]
     Indication: HEADACHE
  3. ACTHAR [Suspect]
     Indication: EYE PAIN
  4. INTERFERON BETA-1B [Suspect]
     Dosage: UNK
     Dates: start: 20061212, end: 20080101
  5. INTERFERON BETA-1B [Suspect]
     Dosage: 2 MIU, QOD
     Route: 058
     Dates: start: 20090304, end: 20100915
  6. INTERFERON BETA-1B [Suspect]
     Indication: MULTIPLE SCLEROSIS
     Dosage: 8 MIU, QOD
     Route: 058
     Dates: start: 20060403, end: 20060501
  7. INTERFERON BETA-1B [Suspect]
     Dosage: 8 MIU, QOD
     Route: 058
     Dates: start: 20101016, end: 20101018
  8. INTERFERON BETA-1B [Suspect]
     Dosage: 6 MIU, QOD
     Dates: start: 20101125
  9. FAMOTIDINE [Concomitant]
  10. PREDNISONE [Concomitant]
     Dosage: TAPERING TO 40 MG
  11. UNCODEABLE ^UNCLASSIFIABLE^ [Concomitant]
  12. INTERFERON BETA-1B [Suspect]
     Dosage: 8 MIU, QOD
     Route: 058
     Dates: start: 20100928, end: 20101006
  13. PERCOCET [Concomitant]

REACTIONS (44)
  - ANGIOPATHY [None]
  - CONTUSION [None]
  - BALANCE DISORDER [None]
  - APHAGIA [None]
  - ABDOMINAL DISCOMFORT [None]
  - ABDOMINAL PAIN UPPER [None]
  - OROPHARYNGEAL PAIN [None]
  - OXYGEN SATURATION DECREASED [None]
  - CENTRAL NERVOUS SYSTEM INFLAMMATION [None]
  - PHOTOPHOBIA [None]
  - VOMITING [None]
  - HAEMATEMESIS [None]
  - MALAISE [None]
  - ABNORMAL SENSATION IN EYE [None]
  - GASTROOESOPHAGEAL REFLUX DISEASE [None]
  - HEART RATE DECREASED [None]
  - CEREBROVASCULAR ARTERIOVENOUS MALFORMATION [None]
  - PAIN IN EXTREMITY [None]
  - NECK PAIN [None]
  - HEAD DISCOMFORT [None]
  - ERYTHEMA [None]
  - STRESS [None]
  - MUSCULAR WEAKNESS [None]
  - FALL [None]
  - MULTIPLE SCLEROSIS RELAPSE [None]
  - DIZZINESS [None]
  - HEADACHE [None]
  - EYE SWELLING [None]
  - DYSPEPSIA [None]
  - CENTRAL NERVOUS SYSTEM LESION [None]
  - BACK PAIN [None]
  - NERVOUS SYSTEM DISORDER [None]
  - INTERVERTEBRAL DISC DEGENERATION [None]
  - BLINDNESS UNILATERAL [None]
  - OPTIC NERVE INJURY [None]
  - PUPILS UNEQUAL [None]
  - BLOOD PRESSURE DECREASED [None]
  - SKIN INJURY [None]
  - NAUSEA [None]
  - VISUAL ACUITY REDUCED [None]
  - PHARYNGEAL OEDEMA [None]
  - EYE PAIN [None]
  - FLUSHING [None]
  - HEMICEPHALALGIA [None]
